FAERS Safety Report 12690631 (Version 1)
Quarter: 2016Q3

REPORT INFORMATION
  Report Type: Spontaneous
  Country: DE (occurrence: DE)
  Receive Date: 20160826
  Receipt Date: 20160826
  Transmission Date: 20161109
  Serious: Yes (Hospitalization, Other)
  Sender: FDA-Public Use
  Company Number: DE-009507513-1608DEU003221

PATIENT
  Age: 85 Year
  Sex: Male
  Weight: 73 kg

DRUGS (5)
  1. AMLODIPINE BESYLATE (+) LOSARTAN POTASSIUM [Concomitant]
     Active Substance: AMLODIPINE\LOSARTAN POTASSIUM
     Dosage: TOTAL DAILY DOSE 50/12.5 MG
     Route: 048
  2. BISOPROLOL [Concomitant]
     Active Substance: BISOPROLOL
     Dosage: TOTAL DAILY DOSE 7.5 MG
     Route: 048
  3. MIRTAZAPINE. [Concomitant]
     Active Substance: MIRTAZAPINE
     Dosage: TOTAL DAILY DOSE 30 MG
     Route: 048
  4. KEYTRUDA [Suspect]
     Active Substance: PEMBROLIZUMAB
     Indication: METASTATIC MALIGNANT MELANOMA
     Dosage: 2 MG/KG BODY WEIGHT = 154 MG
     Route: 042
     Dates: start: 20160419, end: 20160712
  5. ONDANSETRON [Concomitant]
     Active Substance: ONDANSETRON
     Dosage: 4 MG, PRN
     Route: 048

REACTIONS (8)
  - Nausea [Recovering/Resolving]
  - Weight decreased [Recovering/Resolving]
  - Autoimmune colitis [Recovered/Resolved]
  - Diarrhoea [Recovering/Resolving]
  - Condition aggravated [Recovering/Resolving]
  - Asthenia [Recovering/Resolving]
  - Diverticulum intestinal [Recovering/Resolving]
  - Large intestine polyp [Recovering/Resolving]

NARRATIVE: CASE EVENT DATE: 2016
